FAERS Safety Report 13661112 (Version 1)
Quarter: 2017Q2

REPORT INFORMATION
  Report Type: Spontaneous
  Country: US (occurrence: US)
  Receive Date: 20170616
  Receipt Date: 20170616
  Transmission Date: 20170830
  Serious: No
  Sender: FDA-Public Use
  Company Number: US-TEVA-777345ACC

PATIENT
  Age: 34 Year
  Sex: Female
  Weight: 66.74 kg

DRUGS (2)
  1. PARAGARD T 380A [Suspect]
     Active Substance: COPPER
     Indication: CONTRACEPTION
     Dates: start: 20160608, end: 20170508
  2. XANAX [Concomitant]
     Active Substance: ALPRAZOLAM

REACTIONS (3)
  - Loop electrosurgical excision procedure [Unknown]
  - Cervical dysplasia [Unknown]
  - Smear cervix abnormal [Unknown]

NARRATIVE: CASE EVENT DATE: 20161221
